FAERS Safety Report 8410960-X (Version None)
Quarter: 2012Q2

REPORT INFORMATION
  Report Type: 
  Country: None (occurrence: None)
  Receive Date: 20120529
  Receipt Date: 20060322
  Transmission Date: 20120825
  Serious: Yes (Hospitalization)
  Sender: FDA-Public Use
  Company Number: 15691-USA-06-0881

PATIENT
  Age: 54 Year
  Sex: Male

DRUGS (21)
  1. HYDRALIZINE (HYDRALAZINE) [Concomitant]
  2. LISINOPRIL [Concomitant]
  3. MILREINONE (MILRINONE) [Concomitant]
  4. TOLVAPTAN (TOLVAPTAN) TABLET,1DF DOSAGE FORM [Suspect]
     Indication: HYPONATRAEMIA
     Dosage: 15 MG, QD, ORAL
     Route: 048
     Dates: start: 20041220, end: 20060329
  5. TOLVAPTAN (TOLVAPTAN) TABLET,1DF DOSAGE FORM [Suspect]
     Indication: HYPONATRAEMIA
     Dosage: 15 MG, QD, ORAL
     Route: 048
     Dates: start: 20060405
  6. FERROUS SULFATE TAB [Concomitant]
  7. SEREVENT [Concomitant]
  8. COREG [Concomitant]
  9. ISORDIL [Concomitant]
  10. MAG OXIDE (MAGNESIUM OXIDE) [Concomitant]
  11. ASCORBIC ACID [Concomitant]
  12. CELEXA [Concomitant]
  13. ALBUTEROL [Concomitant]
  14. ALLOPURINOL [Concomitant]
  15. PROTONIX [Concomitant]
  16. IMDUR [Concomitant]
  17. LANOXIN [Concomitant]
  18. ASPIRIN [Concomitant]
  19. SPIRONOLACTONE [Concomitant]
  20. ZOCOR [Concomitant]
  21. FLOVENT [Concomitant]

REACTIONS (4)
  - CONDITION AGGRAVATED [None]
  - RENAL FAILURE ACUTE [None]
  - CARDIAC FAILURE [None]
  - ISCHAEMIC CARDIOMYOPATHY [None]
